FAERS Safety Report 7146730-2 (Version None)
Quarter: 2010Q4

REPORT INFORMATION
  Report Type: 
  Country: None (occurrence: None)
  Receive Date: 20101208
  Receipt Date: 20101201
  Transmission Date: 20110411
  Serious: Yes (Hospitalization, Other)
  Sender: FDA-Public Use
  Company Number: US-MERCK-1008USA00569

PATIENT
  Age: 62 Year
  Sex: Female
  Weight: 55 kg

DRUGS (5)
  1. FOSAMAX [Suspect]
     Indication: OSTEOPOROSIS
     Route: 048
     Dates: start: 20071201, end: 20080112
  2. FOSAMAX [Suspect]
     Route: 048
     Dates: end: 20091001
  3. NORTRIPTYLINE [Concomitant]
     Route: 048
  4. LEVOXYL [Concomitant]
     Indication: HYPOTHYROIDISM
     Route: 048
     Dates: start: 20000201
  5. ALENDRONATE SODIUM [Suspect]
     Indication: OSTEOPOROSIS
     Route: 048
     Dates: start: 20080211, end: 20090801

REACTIONS (19)
  - BACK PAIN [None]
  - BLOOD CALCIUM INCREASED [None]
  - BLOOD THYROID STIMULATING HORMONE DECREASED [None]
  - BONE DENSITY DECREASED [None]
  - CARDIAC DISORDER [None]
  - DEVICE FAILURE [None]
  - EAR PAIN [None]
  - GINGIVAL ABSCESS [None]
  - HAEMORRHOIDS [None]
  - HYPOACUSIS [None]
  - IRRITABLE BOWEL SYNDROME [None]
  - MAJOR DEPRESSION [None]
  - MYOCARDIAL INFARCTION [None]
  - ORAL CAVITY FISTULA [None]
  - OSTEONECROSIS OF JAW [None]
  - PERIODONTITIS [None]
  - TONSILLITIS STREPTOCOCCAL [None]
  - TOOTH DISORDER [None]
  - WEIGHT DECREASED [None]
